FAERS Safety Report 5530594-4 (Version None)
Quarter: 2007Q4

REPORT INFORMATION
  Report Type: 
  Country: None (occurrence: None)
  Receive Date: 20071127
  Receipt Date: 20071127
  Transmission Date: 20080405
  Serious: Yes (Hospitalization)
  Sender: FDA-Public Use
  Company Number: None

PATIENT
  Age: 77 Year
  Sex: Male

DRUGS (1)
  1. LITHIUM CARBONATE [Suspect]
     Dosage: 300MG PO BID PTA
     Route: 048

REACTIONS (6)
  - CARDIAC PACEMAKER INSERTION [None]
  - DRUG INTERACTION [None]
  - INSOMNIA [None]
  - RESTLESSNESS [None]
  - TREMOR [None]
  - VENTRICULAR TACHYCARDIA [None]
